FAERS Safety Report 10621570 (Version 1)
Quarter: 2014Q4

REPORT INFORMATION
  Report Type: Spontaneous
  Country: US (occurrence: None)
  Receive Date: 20141126
  Receipt Date: 20141126
  Transmission Date: 20150529
  Serious: Yes (Hospitalization, Disabling, Other)
  Sender: FDA-Public Use
  Company Number: None

PATIENT
  Age: 67 Year
  Sex: Male
  Weight: 90.72 kg

DRUGS (1)
  1. XOPENEX [Suspect]
     Active Substance: LEVALBUTEROL HYDROCHLORIDE
     Indication: HYPERSENSITIVITY
     Dosage: AS NEEDED INHALATION
     Route: 055
     Dates: start: 20131215, end: 20140430

REACTIONS (2)
  - Vitreous floaters [None]
  - Retinal detachment [None]

NARRATIVE: CASE EVENT DATE: 20140410
